FAERS Safety Report 6449291-6 (Version None)
Quarter: 2009Q4

REPORT INFORMATION
  Report Type: 
  Country: None (occurrence: None)
  Receive Date: 20091120
  Receipt Date: 20091109
  Transmission Date: 20100525
  Serious: Yes (Death)
  Sender: FDA-Public Use
  Company Number: CH-GENENTECH-294214

PATIENT
  Sex: Male

DRUGS (3)
  1. BEVACIZUMAB [Suspect]
     Indication: GLIOBLASTOMA MULTIFORME
     Dosage: UNK
     Dates: start: 20080301, end: 20081212
  2. TEMOZOLOMIDE [Concomitant]
     Indication: GLIOBLASTOMA MULTIFORME
     Dosage: UNK
     Dates: start: 20070401, end: 20070701
  3. IRINOTECAN HCL [Concomitant]
     Indication: GLIOBLASTOMA MULTIFORME

REACTIONS (3)
  - DEATH [None]
  - LEUKOPENIA [None]
  - PULMONARY EMBOLISM [None]
